FAERS Safety Report 5887144-2 (Version None)
Quarter: 2008Q3

REPORT INFORMATION
  Report Type: 
  Country: None (occurrence: None)
  Receive Date: 20080917
  Receipt Date: 20080908
  Transmission Date: 20090109
  Serious: Yes (Life-Threatening, Hospitalization, Disabling)
  Sender: FDA-Public Use
  Company Number: US-MERCK-0808USA04873

PATIENT
  Age: 71 Year
  Sex: Male

DRUGS (4)
  1. VYTORIN [Suspect]
     Indication: BLOOD CHOLESTEROL INCREASED
     Route: 048
     Dates: start: 20080501, end: 20080811
  2. VYTORIN [Suspect]
     Route: 048
     Dates: start: 20050101, end: 20080501
  3. FLOMAX [Concomitant]
     Route: 065
  4. PREVACID [Concomitant]
     Route: 065

REACTIONS (1)
  - MYELODYSPLASTIC SYNDROME [None]
